FAERS Safety Report 6933213-5 (Version None)
Quarter: 2010Q3

REPORT INFORMATION
  Report Type: 
  Country: None (occurrence: None)
  Receive Date: 20100820
  Receipt Date: 20100817
  Transmission Date: 20110219
  Serious: Yes (Hospitalization, Other)
  Sender: FDA-Public Use
  Company Number: DE-TEVA-229170ISR

PATIENT
  Sex: Male

DRUGS (1)
  1. COPAXONE [Suspect]
     Indication: MULTIPLE SCLEROSIS
     Route: 058
     Dates: start: 20091130

REACTIONS (4)
  - PROSTATE CANCER [None]
  - PULMONARY EMBOLISM [None]
  - SUTURE RUPTURE [None]
  - URETHRAL OBSTRUCTION [None]
